FAERS Safety Report 7047183-5 (Version None)
Quarter: 2010Q4

REPORT INFORMATION
  Report Type: 
  Country: None (occurrence: None)
  Receive Date: 20101015
  Receipt Date: 20101001
  Transmission Date: 20110411
  Serious: Yes (Other)
  Sender: FDA-Public Use
  Company Number: US-ACTELION-A-NJ2010-39425

PATIENT
  Sex: Female
  Weight: 102.95 kg

DRUGS (5)
  1. BOSENTAN TABLET 125 MG US [Suspect]
     Indication: PULMONARY ARTERIAL HYPERTENSION
     Dosage: 125 MG, BID
     Route: 048
     Dates: end: 20100830
  2. BOSENTAN TABLET 125 MG US [Suspect]
     Dosage: 62.5 MG, BID
     Route: 048
     Dates: start: 20060622
  3. BOSENTAN TABLET 125 MG US [Suspect]
     Dosage: 125 MG, BID
     Route: 048
     Dates: end: 20080331
  4. SYNTHROID [Concomitant]
  5. ORTHO TRI-CYCLEN [Concomitant]

REACTIONS (1)
  - PREGNANCY [None]
